FAERS Safety Report 10832403 (Version 1)
Quarter: 2015Q1

REPORT INFORMATION
  Report Type: Report from Study
  Country: US (occurrence: US)
  Receive Date: 20150219
  Receipt Date: 20150219
  Transmission Date: 20150721
  Serious: No
  Sender: FDA-Public Use
  Company Number: US-ABBVIE-14P-163-1197344-00

PATIENT
  Sex: Female
  Weight: 52.21 kg

DRUGS (5)
  1. HUMIRA [Suspect]
     Active Substance: ADALIMUMAB
     Indication: COLITIS ULCERATIVE
     Dosage: LOADING DOSE 4 INJECTION
     Route: 058
     Dates: start: 201306, end: 201307
  2. KLONOPIN [Concomitant]
     Active Substance: CLONAZEPAM
     Indication: PRODUCT USED FOR UNKNOWN INDICATION
  3. PRESIDONE [Concomitant]
     Indication: PRODUCT USED FOR UNKNOWN INDICATION
  4. UNKNOWN BIRTH CONTROL [Concomitant]
     Active Substance: UNSPECIFIED INGREDIENT
     Indication: PRODUCT USED FOR UNKNOWN INDICATION
  5. LIALDA [Concomitant]
     Active Substance: MESALAMINE
     Indication: PRODUCT USED FOR UNKNOWN INDICATION

REACTIONS (9)
  - Hypoaesthesia [Recovered/Resolved]
  - Visual perseveration [Unknown]
  - Dry skin [Not Recovered/Not Resolved]
  - Skin burning sensation [Recovered/Resolved]
  - Pruritus [Not Recovered/Not Resolved]
  - Tremor [Not Recovered/Not Resolved]
  - Rash pruritic [Recovered/Resolved]
  - Muscular weakness [Recovered/Resolved]
  - Anxiety [Not Recovered/Not Resolved]
